FAERS Safety Report 8217458-2 (Version None)
Quarter: 2012Q1

REPORT INFORMATION
  Report Type: 
  Country: None (occurrence: None)
  Receive Date: 20120301
  Receipt Date: 20111105
  Transmission Date: 20120608
  Serious: Yes (Hospitalization)
  Sender: FDA-Public Use
  Company Number: GAM-057-11-US

PATIENT
  Age: 78 Year
  Sex: Female

DRUGS (1)
  1. OCTAGAM [Suspect]
     Indication: NEUROPATHY PERIPHERAL
     Dosage: 10 G - 4 X 1/WEEKS, IV
     Route: 042
     Dates: start: 20100504, end: 20100505

REACTIONS (5)
  - EMBOLIC CEREBRAL INFARCTION [None]
  - HYPERTENSION [None]
  - ACUTE MYOCARDIAL INFARCTION [None]
  - NAUSEA [None]
  - CHEST PAIN [None]
